FAERS Safety Report 6006058-0 (Version None)
Quarter: 2008Q4

REPORT INFORMATION
  Report Type: 
  Country: None (occurrence: None)
  Receive Date: 20081216
  Receipt Date: 20081216
  Transmission Date: 20090506
  Serious: Yes (Hospitalization)
  Sender: FDA-Public Use
  Company Number: None

PATIENT
  Age: 81 Year
  Sex: Male

DRUGS (2)
  1. WARFARIN SODIUM [Suspect]
     Indication: ATRIAL FIBRILLATION
     Dosage: 1 MG EVERY DAY PO
     Route: 048
     Dates: start: 20070108, end: 20081129
  2. WARFARIN SODIUM [Suspect]
     Dosage: 1.5 MG EVERY DAY PO
     Route: 048
     Dates: start: 20070108, end: 20081129

REACTIONS (2)
  - DRUG TOXICITY [None]
  - INTERNATIONAL NORMALISED RATIO ABNORMAL [None]
